FAERS Safety Report 4379930-5 (Version None)
Quarter: 2004Q2

REPORT INFORMATION
  Report Type: 
  Country: None (occurrence: None)
  Receive Date: 20040614
  Receipt Date: 20040602
  Transmission Date: 20050107
  Serious: No
  Sender: FDA-Public Use
  Company Number: 04P-167-0262910-00

PATIENT
  Age: 27 Year
  Sex: Female

DRUGS (2)
  1. BIAXIN [Suspect]
     Indication: LOWER RESPIRATORY TRACT INFECTION
     Dosage: 250 MG, 2 IN 1 D, PER ORAL
     Route: 048
     Dates: start: 20040420, end: 20040423
  2. ALBUTEROL SULFATE [Concomitant]

REACTIONS (4)
  - ARTHRALGIA [None]
  - DELUSION [None]
  - MYALGIA [None]
  - PARANOIA [None]
